FAERS Safety Report 12492338 (Version 1)
Quarter: 2016Q2

REPORT INFORMATION
  Report Type: Spontaneous
  Country: US (occurrence: None)
  Receive Date: 20160622
  Receipt Date: 20160622
  Transmission Date: 20160815
  Serious: Yes (Hospitalization)
  Sender: FDA-Public Use
  Company Number: None

PATIENT
  Age: 55 Year
  Sex: Male
  Weight: 78.2 kg

DRUGS (7)
  1. ETOPOSIDE (VP-16) [Suspect]
     Active Substance: ETOPOSIDE
     Dates: end: 20160609
  2. RITUXIMAB (MOAB C2B8 ANTI CD20, CHIMERIC) [Suspect]
     Active Substance: RITUXIMAB
     Dates: end: 20160606
  3. CYCLOPHOSPHAMIDE. [Suspect]
     Active Substance: CYCLOPHOSPHAMIDE
     Dates: end: 20160610
  4. DOXORUBICIN HYDROCHLORIDE. [Suspect]
     Active Substance: DOXORUBICIN HYDROCHLORIDE
     Dates: end: 20160609
  5. PREDNISONE. [Suspect]
     Active Substance: PREDNISONE
     Dates: end: 20160610
  6. METHOTREXATE [Suspect]
     Active Substance: METHOTREXATE
     Dates: end: 20160613
  7. VINCRISTINE SULFATE. [Suspect]
     Active Substance: VINCRISTINE SULFATE
     Dates: end: 20160609

REACTIONS (7)
  - Oral pain [None]
  - Hypophagia [None]
  - Blood pressure decreased [None]
  - Mucosal inflammation [None]
  - Hypotension [None]
  - Odynophagia [None]
  - Pancytopenia [None]

NARRATIVE: CASE EVENT DATE: 20160618
